FAERS Safety Report 21982157 (Version 2)
Quarter: 2023Q1

REPORT INFORMATION
  Report Type: Spontaneous
  Country: TR (occurrence: TR)
  Receive Date: 20230213
  Receipt Date: 20230217
  Transmission Date: 20230417
  Serious: Yes (Other)
  Sender: FDA-Public Use
  Company Number: TR-SUN PHARMACEUTICAL INDUSTRIES LTD-2023R1-377270

PATIENT
  Age: 14 Month
  Sex: Male

DRUGS (1)
  1. VALPROATE [Suspect]
     Active Substance: VALPROIC ACID
     Indication: Product used for unknown indication
     Dosage: UNK
     Route: 065

REACTIONS (3)
  - Foetal anticonvulsant syndrome [Unknown]
  - Disease recurrence [Unknown]
  - Foetal exposure during pregnancy [Unknown]
